FAERS Safety Report 9016771 (Version 1)
Quarter: 2013Q1

REPORT INFORMATION
  Report Type: Spontaneous
  Country: FR (occurrence: FR)
  Receive Date: 20130116
  Receipt Date: 20130116
  Transmission Date: 20140127
  Serious: Yes (Hospitalization, Other)
  Sender: FDA-Public Use
  Company Number: FR-ASTRAZENECA-2013SE02294

PATIENT
  Age: 39 Year
  Sex: Male

DRUGS (13)
  1. INEXIUM [Suspect]
     Route: 048
     Dates: end: 20121116
  2. VFEND [Suspect]
     Route: 048
     Dates: end: 201212
  3. BACTRIM [Suspect]
     Route: 048
     Dates: end: 20121116
  4. NEORAL [Concomitant]
     Route: 048
  5. SOLUPRED [Concomitant]
     Route: 048
  6. LEDERFOLINE [Concomitant]
     Route: 048
  7. ZELITREX [Concomitant]
     Route: 048
  8. ORACILLINE [Concomitant]
     Route: 048
  9. URSOLVAN [Concomitant]
     Route: 048
     Dates: end: 20121116
  10. DEDROGYL [Concomitant]
     Route: 048
  11. TAZOCILLINE [Concomitant]
     Route: 048
  12. MAGNESIUM [Concomitant]
  13. AXEPIM [Concomitant]

REACTIONS (4)
  - Aplasia [Recovered/Resolved]
  - Agranulocytosis [Recovered/Resolved]
  - Pancytopenia [Recovered/Resolved]
  - Aphthous stomatitis [Unknown]
